FAERS Safety Report 14327589 (Version 2)
Quarter: 2018Q1

REPORT INFORMATION
  Report Type: Spontaneous
  Country: US (occurrence: US)
  Receive Date: 20171227
  Receipt Date: 20180110
  Transmission Date: 20180509
  Serious: No
  Sender: FDA-Public Use
  Company Number: US-PFIZER INC-2017546374

PATIENT
  Age: 57 Year
  Sex: Female
  Weight: 70.3 kg

DRUGS (1)
  1. PREMARIN [Suspect]
     Active Substance: ESTROGENS, CONJUGATED
     Indication: ATROPHIC VULVOVAGINITIS
     Dosage: 1 G (GRAM), CYCLIC (1 GRAM VAGINALLY 3 TIMES A WEEK)
     Route: 067

REACTIONS (1)
  - Application site odour [Unknown]

NARRATIVE: CASE EVENT DATE: 20171214
